FAERS Safety Report 5046487-5 (Version None)
Quarter: 2006Q3

REPORT INFORMATION
  Report Type: 
  Country: None (occurrence: None)
  Receive Date: 20060707
  Receipt Date: 20060707
  Transmission Date: 20061208
  Serious: Yes (Other)
  Sender: FDA-Public Use
  Company Number: None

PATIENT
  Age: 69 Year
  Sex: Female
  Weight: 68 kg

DRUGS (8)
  1. HYDROMORPHONE HCL [Suspect]
     Indication: PROCEDURAL PAIN
     Dosage: 0.5 MG   Q 2-3 HOURS   IV BOLUS
     Route: 040
     Dates: start: 20060704, end: 20060704
  2. FENTANYL TRANSDERMAL SYSTEM [Suspect]
     Indication: PROCEDURAL PAIN
     Dosage: 25 MCG   Q 1-2 HOURS    IV BOLUS
     Route: 040
     Dates: start: 20060626, end: 20060704
  3. PREDNISONE TAB [Concomitant]
  4. TAGAMET [Concomitant]
  5. THEOPHYLLINE [Concomitant]
  6. SOMA [Concomitant]
  7. VICODIN [Concomitant]
  8. PROVENTIL [Concomitant]

REACTIONS (2)
  - DYSPNOEA [None]
  - POST PROCEDURAL COMPLICATION [None]
